FAERS Safety Report 11826289 (Version 2)
Quarter: 2016Q1

REPORT INFORMATION
  Report Type: Spontaneous
  Country: US (occurrence: US)
  Receive Date: 20151211
  Receipt Date: 20160309
  Transmission Date: 20160525
  Serious: Yes (Other)
  Sender: FDA-Public Use
  Company Number: US-BRISTOL-MYERS SQUIBB COMPANY-BMS-2015-084876

PATIENT
  Age: 85 Year
  Sex: Female
  Weight: 68.27 kg

DRUGS (1)
  1. OPDIVO [Suspect]
     Active Substance: NIVOLUMAB
     Indication: NON-SMALL CELL LUNG CANCER
     Dosage: 200 MG, UNK; Q14DAYS
     Route: 042
     Dates: start: 20150901, end: 20151217

REACTIONS (9)
  - Fatigue [Not Recovered/Not Resolved]
  - Joint swelling [Unknown]
  - Anxiety [Not Recovered/Not Resolved]
  - Malignant neoplasm progression [Unknown]
  - Muscular weakness [Unknown]
  - Nasopharyngitis [Unknown]
  - Neuropathy peripheral [Unknown]
  - Dyspnoea [Unknown]
  - Burning sensation [Unknown]

NARRATIVE: CASE EVENT DATE: 20160104
